FAERS Safety Report 8071598-X (Version None)
Quarter: 2012Q1

REPORT INFORMATION
  Report Type: 
  Country: None (occurrence: None)
  Receive Date: 20120125
  Receipt Date: 20120118
  Transmission Date: 20120608
  Serious: Yes (Other)
  Sender: FDA-Public Use
  Company Number: DE-PFIZER INC-2011146264

PATIENT
  Age: 76 Year
  Sex: Male

DRUGS (3)
  1. METOPROLOL TARTRATE [Concomitant]
     Dosage: UNK
     Dates: start: 20100101
  2. RAMIPRIL [Suspect]
     Indication: HYPERTENSION
     Dosage: 2.5 MG, 2X/DAY
     Route: 048
     Dates: start: 20081125, end: 20110905
  3. FLUPHENAZINE [Concomitant]
     Dosage: UNK
     Dates: start: 19920101

REACTIONS (3)
  - COUGH [None]
  - PULMONARY FIBROSIS [None]
  - INTERSTITIAL LUNG DISEASE [None]
